FAERS Safety Report 15027604 (Version 2)
Quarter: 2018Q2

REPORT INFORMATION
  Report Type: Spontaneous
  Country: JP (occurrence: JP)
  Receive Date: 20180619
  Receipt Date: 20180629
  Transmission Date: 20180711
  Serious: Yes (Other)
  Sender: FDA-Public Use
  Company Number: JP-ORION CORPORATION ORION PHARMA-ENTC2018-0189

PATIENT
  Age: 71 Year
  Sex: Female

DRUGS (2)
  1. STALEVO [Suspect]
     Active Substance: CARBIDOPA\ENTACAPONE\LEVODOPA
     Indication: PARKINSON^S DISEASE
     Route: 065
  2. STALEVO [Suspect]
     Active Substance: CARBIDOPA\ENTACAPONE\LEVODOPA
     Indication: THERAPEUTIC RESPONSE SHORTENED
     Route: 065

REACTIONS (6)
  - Depressive symptom [Unknown]
  - Parkinson^s disease [Unknown]
  - Dysphonia [Recovering/Resolving]
  - Oral discomfort [Unknown]
  - Suicidal ideation [Unknown]
  - Mobility decreased [Unknown]
